FAERS Safety Report 14551758 (Version 5)
Quarter: 2018Q4

REPORT INFORMATION
  Report Type: Spontaneous
  Country: JP (occurrence: JP)
  Receive Date: 20180220
  Receipt Date: 20181120
  Transmission Date: 20190204
  Serious: Yes (Hospitalization, Other)
  Sender: FDA-Public Use
  Company Number: JP-BRISTOL-MYERS SQUIBB COMPANY-BMS-2018-015601

PATIENT
  Age: 77 Year
  Sex: Male

DRUGS (9)
  1. PREDONINE [Suspect]
     Active Substance: PREDNISOLONE
     Indication: COLITIS
     Dosage: 60 MG, QD
     Route: 042
     Dates: start: 20170730, end: 20170810
  2. LYRICA [Concomitant]
     Active Substance: PREGABALIN
     Indication: NON-SMALL CELL LUNG CANCER RECURRENT
     Dosage: 75 MG, Q12H
     Route: 048
     Dates: start: 20170707
  3. OXYCONTIN [Concomitant]
     Active Substance: OXYCODONE HYDROCHLORIDE
     Indication: NON-SMALL CELL LUNG CANCER RECURRENT
     Dosage: 5 MG, Q12H
     Route: 048
     Dates: start: 20170707
  4. PREDONINE [Suspect]
     Active Substance: PREDNISOLONE
     Indication: PRODUCT USED FOR UNKNOWN INDICATION
     Dosage: 40 MG, QD
     Route: 042
     Dates: start: 20170811, end: 20170824
  5. OPDIVO [Suspect]
     Active Substance: NIVOLUMAB
     Indication: NON-SMALL CELL LUNG CANCER
     Dosage: 3 MG/KG, UNK
     Route: 041
     Dates: start: 20170710, end: 20170724
  6. PREDONINE [Suspect]
     Active Substance: PREDNISOLONE
     Indication: PRODUCT USED FOR UNKNOWN INDICATION
     Dosage: 20 MG, QD
     Route: 042
     Dates: start: 20170825, end: 20170831
  7. OXINORM                            /00045603/ [Concomitant]
     Active Substance: OXYCODONE HYDROCHLORIDE
     Indication: NON-SMALL CELL LUNG CANCER RECURRENT
     Dosage: 2.5 MG, UNK
     Route: 048
     Dates: start: 20170707
  8. CALONAL [Concomitant]
     Active Substance: ACETAMINOPHEN
     Indication: NON-SMALL CELL LUNG CANCER RECURRENT
     Dosage: 500 MG, Q6H
     Route: 048
     Dates: start: 20170421
  9. ETODOLAC. [Concomitant]
     Active Substance: ETODOLAC
     Indication: NON-SMALL CELL LUNG CANCER RECURRENT
     Dosage: 200 MG, Q12H
     Route: 048
     Dates: start: 20170707

REACTIONS (2)
  - Cytomegalovirus enterocolitis [Recovered/Resolved]
  - Colitis [Recovered/Resolved]

NARRATIVE: CASE EVENT DATE: 20170728
